FAERS Safety Report 16895598 (Version 1)
Quarter: 2019Q4

REPORT INFORMATION
  Report Type: Spontaneous
  Country: US (occurrence: US)
  Receive Date: 20191007
  Receipt Date: 20191007
  Transmission Date: 20200122
  Serious: Yes (Hospitalization)
  Sender: FDA-Public Use
  Company Number: None

PATIENT
  Age: 57 Year
  Sex: Female

DRUGS (2)
  1. COSENTYX [Concomitant]
     Active Substance: SECUKINUMAB
     Dates: start: 20181007
  2. TALTZ [Suspect]
     Active Substance: IXEKIZUMAB
     Indication: PSORIATIC ARTHROPATHY
     Route: 058
     Dates: end: 20191001

REACTIONS (5)
  - Thermal burn [None]
  - Pruritus [None]
  - Urticaria [None]
  - Wound secretion [None]
  - Rash [None]

NARRATIVE: CASE EVENT DATE: 20190925
